FAERS Safety Report 23556855 (Version 2)
Quarter: 2024Q1

REPORT INFORMATION
  Report Type: Report from Study
  Country: ES (occurrence: ES)
  Receive Date: 20240223
  Receipt Date: 20240320
  Transmission Date: 20240410
  Serious: Yes (Life-Threatening, Other)
  Sender: FDA-Public Use
  Company Number: ES-SUN PHARMACEUTICAL INDUSTRIES LTD-2024RR-432152

PATIENT
  Age: 72 Year
  Sex: Female
  Weight: 72 kg

DRUGS (4)
  1. OXALIPLATIN [Suspect]
     Active Substance: OXALIPLATIN
     Indication: Oesophageal adenocarcinoma
     Dosage: 95.3 MILLIGRAM/SQ. METER, Q3W
     Route: 042
     Dates: start: 20230810
  2. OXALIPLATIN [Suspect]
     Active Substance: OXALIPLATIN
     Dosage: 95.3 MILLIGRAM/SQ. METER, Q3W
     Route: 042
     Dates: start: 20231011, end: 20231011
  3. CAPECITABINE [Suspect]
     Active Substance: CAPECITABINE
     Indication: Oesophageal adenocarcinoma
     Dosage: 767 MILLIGRAM/SQ. METER, Q12H
     Route: 048
     Dates: start: 20230810
  4. CAPECITABINE [Suspect]
     Active Substance: CAPECITABINE
     Dosage: 767 MILLIGRAM/SQ. METER, Q12H, CYCLE 3 DAY 1
     Route: 048
     Dates: start: 20231011

REACTIONS (2)
  - Infusion related reaction [Recovered/Resolved]
  - Anaphylactic reaction [Recovered/Resolved]

NARRATIVE: CASE EVENT DATE: 20231011
